FAERS Safety Report 25655097 (Version 1)
Quarter: 2025Q3

REPORT INFORMATION
  Report Type: Spontaneous
  Country: US (occurrence: US)
  Receive Date: 20250807
  Receipt Date: 20250807
  Transmission Date: 20251020
  Serious: No
  Sender: TEVA
  Company Number: US-TEVA-VS-3357314

PATIENT
  Age: 54 Year
  Sex: Female

DRUGS (1)
  1. QVAR REDIHALER [Suspect]
     Active Substance: BECLOMETHASONE DIPROPIONATE
     Indication: Product used for unknown indication
     Route: 065
     Dates: start: 20250720, end: 20250720

REACTIONS (2)
  - Palpitations [Unknown]
  - Feeling jittery [Unknown]

NARRATIVE: CASE EVENT DATE: 20250720
